FAERS Safety Report 11192196 (Version 2)
Quarter: 2015Q3

REPORT INFORMATION
  Report Type: Spontaneous
  Country: US (occurrence: US)
  Receive Date: 20150616
  Receipt Date: 20150714
  Transmission Date: 20151125
  Serious: Yes (Hospitalization)
  Sender: FDA-Public Use
  Company Number: US-BIOGENIDEC-2015BI078869

PATIENT
  Age: 67 Year
  Sex: Male

DRUGS (19)
  1. VITAMIN D [Concomitant]
     Active Substance: CHOLECALCIFEROL
  2. AMLODIPINE [Concomitant]
     Active Substance: AMLODIPINE BESYLATE
  3. BUDESONIDE/FORMOTEROL [Concomitant]
     Active Substance: BUDESONIDE\FORMOTEROL
  4. TECFIDERA [Suspect]
     Active Substance: DIMETHYL FUMARATE
     Indication: MULTIPLE SCLEROSIS
     Route: 048
     Dates: start: 20130912
  5. BACLOFEN. [Concomitant]
     Active Substance: BACLOFEN
  6. TIOTROPIUM [Concomitant]
     Active Substance: TIOTROPIUM
  7. TECFIDERA [Suspect]
     Active Substance: DIMETHYL FUMARATE
     Indication: MULTIPLE SCLEROSIS
     Route: 048
     Dates: start: 20140318, end: 20150604
  8. ALBUTEROL. [Concomitant]
     Active Substance: ALBUTEROL
  9. IPRATROPIUM [Concomitant]
     Active Substance: IPRATROPIUM
  10. ONDANSETRON [Concomitant]
     Active Substance: ONDANSETRON
  11. OXYCODONE [Concomitant]
     Active Substance: OXYCODONE
  12. SENNA [Concomitant]
     Active Substance: SENNA LEAF\SENNOSIDES\SENNOSIDES A AND B
  13. HYDROMORPHONE [Concomitant]
     Active Substance: HYDROMORPHONE
  14. HEPARIN [Concomitant]
     Active Substance: HEPARIN SODIUM
  15. SODIUM CHLORIDE. [Concomitant]
     Active Substance: SODIUM CHLORIDE
  16. DOCUSATE [Concomitant]
     Active Substance: DOCUSATE
  17. LOSARTAN. [Concomitant]
     Active Substance: LOSARTAN
  18. POLYETHYLENE GLYCOL [Concomitant]
     Active Substance: POLYETHYLENE GLYCOLS
  19. SOLIFENACIN [Concomitant]
     Active Substance: SOLIFENACIN

REACTIONS (2)
  - Pneumonia [Not Recovered/Not Resolved]
  - Squamous cell carcinoma of head and neck [Not Recovered/Not Resolved]

NARRATIVE: CASE EVENT DATE: 20150525
